FAERS Safety Report 22603232 (Version 1)
Quarter: 2023Q2

REPORT INFORMATION
  Report Type: Spontaneous
  Country: DE (occurrence: DE)
  Receive Date: 20230615
  Receipt Date: 20230615
  Transmission Date: 20230722
  Serious: Yes (Death, Life-Threatening, Hospitalization)
  Sender: FDA-Public Use
  Company Number: None

PATIENT
  Age: 81 Year
  Sex: Female

DRUGS (74)
  1. VANCOMYCIN [Suspect]
     Active Substance: VANCOMYCIN
     Indication: Bacterial disease carrier
     Dosage: UNK (INJECTION)
     Route: 065
     Dates: start: 20050131
  2. VANCOMYCIN [Suspect]
     Active Substance: VANCOMYCIN
     Dosage: 1 G, QD
     Route: 042
     Dates: start: 20050206
  3. VANCOMYCIN [Suspect]
     Active Substance: VANCOMYCIN
     Dosage: 0.5 G, QD (INJECTION)
     Route: 042
     Dates: start: 20050209, end: 20050221
  4. VANCOMYCIN [Suspect]
     Active Substance: VANCOMYCIN
     Dosage: UNK
     Route: 042
     Dates: start: 20050224, end: 20050224
  5. VANCOMYCIN [Suspect]
     Active Substance: VANCOMYCIN
     Dosage: UNK (INJECTION)
     Route: 042
     Dates: start: 20050302
  6. CALCIUM [Suspect]
     Active Substance: CALCIUM
     Indication: Product used for unknown indication
     Dosage: UNK
     Route: 042
     Dates: start: 20050201, end: 20050215
  7. CALCIUM [Suspect]
     Active Substance: CALCIUM
     Dosage: UNK
     Route: 065
     Dates: start: 20050204, end: 20050216
  8. SUFENTANIL [Suspect]
     Active Substance: SUFENTANIL
     Indication: Analgesic therapy
     Dosage: UNK (INJECTION)
     Route: 065
     Dates: start: 20050203, end: 20050213
  9. METOCLOPRAMIDE [Suspect]
     Active Substance: METOCLOPRAMIDE
     Indication: Nausea
     Dosage: DOSE: 3X1 AMP (INJECTION)
     Route: 042
     Dates: start: 20050205, end: 20050208
  10. METOCLOPRAMIDE [Suspect]
     Active Substance: METOCLOPRAMIDE
     Dosage: UNK (INJECTION)
     Route: 042
     Dates: start: 20050216, end: 20050219
  11. PIPERACILLIN [Suspect]
     Active Substance: PIPERACILLIN
     Indication: Product used for unknown indication
     Dosage: 12 G, QD (INJECTION)
     Route: 042
     Dates: start: 20050127, end: 20050215
  12. DOBUTAMINE [Suspect]
     Active Substance: DOBUTAMINE HYDROCHLORIDE
     Indication: Cardiovascular disorder
     Dosage: UNK (INJECTION)
     Route: 042
     Dates: start: 20050126, end: 20050203
  13. DOBUTAMINE [Suspect]
     Active Substance: DOBUTAMINE HYDROCHLORIDE
     Dosage: UNK (INJECTION)
     Route: 042
     Dates: start: 20050209, end: 20050217
  14. MIDAZOLAM [Suspect]
     Active Substance: MIDAZOLAM
     Indication: Sedation
     Dosage: 45 MG (INJECTION)
     Route: 042
     Dates: start: 20050201, end: 20050213
  15. HETASTARCH [Suspect]
     Active Substance: HETASTARCH
     Indication: Product used for unknown indication
     Dosage: UNK (FORM: INFUSION, DOSE: 130/0)
     Route: 042
     Dates: start: 20050201, end: 20050203
  16. HETASTARCH [Suspect]
     Active Substance: HETASTARCH
     Dosage: UNK (DOSE: 5-0 )
     Route: 042
     Dates: start: 20050207, end: 20050209
  17. HETASTARCH [Suspect]
     Active Substance: HETASTARCH
     Dosage: UNK (DOSE: 51-2)
     Route: 042
     Dates: start: 20050213, end: 20050213
  18. HETASTARCH [Suspect]
     Active Substance: HETASTARCH
     Dosage: UNK (DOSE: 51)
     Route: 042
     Dates: start: 20050215, end: 20050215
  19. HETASTARCH [Suspect]
     Active Substance: HETASTARCH
     Dosage: UNK
     Route: 042
     Dates: start: 20050221, end: 20050223
  20. HETASTARCH [Suspect]
     Active Substance: HETASTARCH
     Dosage: UNK
     Route: 042
     Dates: start: 20050226, end: 20050228
  21. HETASTARCH [Suspect]
     Active Substance: HETASTARCH
     Dosage: UNK
     Route: 042
     Dates: start: 20050302
  22. SULBACTAM SODIUM [Suspect]
     Active Substance: SULBACTAM SODIUM
     Indication: Product used for unknown indication
     Dosage: 1.5 G, QD
     Route: 042
     Dates: start: 20050127, end: 20050215
  23. NOVALGIN (METAMIZOLE SODIUM) [Suspect]
     Active Substance: METAMIZOLE SODIUM
     Indication: Pain
     Dosage: 5 G, QD
     Route: 042
     Dates: start: 20050217, end: 20050226
  24. NOVALGIN (METAMIZOLE SODIUM) [Suspect]
     Active Substance: METAMIZOLE SODIUM
     Dosage: 1 G, QD
     Route: 042
     Dates: start: 20050302, end: 20050302
  25. ASPIRIN [Suspect]
     Active Substance: ASPIRIN
     Indication: Thrombosis
     Dosage: 1500 MG, QD
     Route: 042
     Dates: start: 20050128, end: 20050206
  26. ASPIRIN [Suspect]
     Active Substance: ASPIRIN
     Dosage: 500 MG, QD ( RECEIVED ON 8-FEB, 10-FEB, 12-FEB, 14-FEB, 16-FEB-2005)
     Route: 042
     Dates: start: 20050208
  27. INSULIN HUMAN [Suspect]
     Active Substance: INSULIN HUMAN
     Indication: Blood glucose abnormal
     Dosage: UNK (STRENGTH: 50IE)
     Route: 042
     Dates: start: 20050126, end: 20050303
  28. CASPOFUNGIN [Suspect]
     Active Substance: CASPOFUNGIN
     Indication: Candida infection
     Dosage: 70 MG, QD
     Route: 042
     Dates: start: 20050209, end: 20050215
  29. CASPOFUNGIN [Suspect]
     Active Substance: CASPOFUNGIN
     Dosage: 50 MG, QD
     Route: 042
     Dates: start: 20050224, end: 20050303
  30. SPIRONOLACTONE [Suspect]
     Active Substance: SPIRONOLACTONE
     Indication: Oedema
     Dosage: 200 MG, QD
     Route: 042
     Dates: start: 20050206, end: 20050303
  31. PERIAMIN X [Suspect]
     Active Substance: AMINO ACIDS\ELECTROLYTES NOS\XYLITOL
     Indication: Product used for unknown indication
     Dosage: UNK
     Route: 042
     Dates: start: 20050224, end: 20050224
  32. FUROSEMIDE [Suspect]
     Active Substance: FUROSEMIDE
     Indication: Polyuria
     Dosage: DOSE: 4X20MG
     Route: 042
     Dates: start: 20050204, end: 20050216
  33. FUROSEMIDE [Suspect]
     Active Substance: FUROSEMIDE
     Dosage: DOSE: 4 X 10MG
     Route: 042
     Dates: start: 20050224, end: 20050227
  34. ALBUMIN HUMAN [Suspect]
     Active Substance: ALBUMIN HUMAN
     Indication: Product substitution
     Dosage: DOSE: 3X100 ML
     Route: 042
     Dates: start: 20050203, end: 20050205
  35. ALBUMIN HUMAN [Suspect]
     Active Substance: ALBUMIN HUMAN
     Dosage: DOSE: 2X100ML
     Route: 042
     Dates: start: 20050208, end: 20050210
  36. ENOXAPARIN SODIUM [Suspect]
     Active Substance: ENOXAPARIN SODIUM
     Indication: Thrombosis
     Dosage: 40 MG, QD
     Route: 058
     Dates: start: 20050217, end: 20050303
  37. NOREPINEPHRINE HYDROCHLORIDE, (+/-)- [Suspect]
     Active Substance: NOREPINEPHRINE HYDROCHLORIDE, (+/-)-
     Indication: Product used for unknown indication
     Dosage: UNK
     Route: 042
     Dates: start: 20050126, end: 20050203
  38. NOREPINEPHRINE HYDROCHLORIDE, (+/-)- [Suspect]
     Active Substance: NOREPINEPHRINE HYDROCHLORIDE, (+/-)-
     Dosage: UNK
     Route: 042
     Dates: start: 20050208, end: 20050217
  39. NOREPINEPHRINE HYDROCHLORIDE, (+/-)- [Suspect]
     Active Substance: NOREPINEPHRINE HYDROCHLORIDE, (+/-)-
     Dosage: UNK
     Route: 042
     Dates: start: 20050224, end: 20050303
  40. DIFLUCAN [Suspect]
     Active Substance: FLUCONAZOLE
     Indication: Fungal infection
     Dosage: UNK
     Route: 042
     Dates: start: 20050131, end: 20050210
  41. FLUIMUCIL [Suspect]
     Active Substance: ACETYLCYSTEINE
     Indication: Product used for unknown indication
     Dosage: UNK
     Route: 042
     Dates: start: 20050126, end: 20050302
  42. PIRITRAMIDE [Suspect]
     Active Substance: PIRITRAMIDE
     Indication: Pain
     Dosage: DOSE: 2X45 30 MG 40 MG
     Route: 042
     Dates: start: 20050214, end: 20050216
  43. ENOXAPARIN [Suspect]
     Active Substance: ENOXAPARIN
     Indication: Product used for unknown indication
     Dosage: UNK
     Route: 065
     Dates: start: 20050126
  44. OMEPRAZOLE [Suspect]
     Active Substance: OMEPRAZOLE
     Indication: Prophylaxis
     Dosage: 40 MG, QD
     Route: 042
     Dates: start: 20050127, end: 20050303
  45. ERYTHROMYCIN [Suspect]
     Active Substance: ERYTHROMYCIN
     Indication: Product used for unknown indication
     Dosage: 300 MG, QD
     Route: 042
     Dates: start: 20050205, end: 20050207
  46. ERYTHROMYCIN [Suspect]
     Active Substance: ERYTHROMYCIN
     Dosage: 400 MG, QD
     Route: 042
     Dates: start: 20050214, end: 20050219
  47. HEPARIN SODIUM [Suspect]
     Active Substance: HEPARIN SODIUM
     Indication: Thrombosis
     Dosage: UNK (STRENGTH: 10000IE)
     Route: 042
     Dates: start: 20050128, end: 20050216
  48. DEXTROSE [Suspect]
     Active Substance: DEXTROSE\DEXTROSE MONOHYDRATE
     Indication: Product used for unknown indication
     Dosage: 100 ML (STRENGTH: 40%, 20%. FOR SUBSTITUTION)
     Route: 042
     Dates: start: 20050206, end: 20050218
  49. AMINO ACIDS\CARBOHYDRATES\MINERALS\SOYBEAN OIL\VITAMINS [Suspect]
     Active Substance: AMINO ACIDS\CARBOHYDRATES\MINERALS\SOYBEAN OIL\VITAMINS
     Indication: Nutritional supplementation
     Dosage: 250 ML
     Route: 048
     Dates: start: 20050205, end: 20050224
  50. CLONIDINE [Concomitant]
     Active Substance: CLONIDINE
     Indication: Product used for unknown indication
     Dosage: UNK
     Route: 065
     Dates: start: 20050131
  51. HYDROCORTISONE [Concomitant]
     Active Substance: HYDROCORTISONE
     Indication: Product used for unknown indication
     Dosage: 60 MG
     Route: 042
     Dates: start: 20050202, end: 20050206
  52. DIGITOXIN [Concomitant]
     Active Substance: DIGITOXIN
     Indication: Product used for unknown indication
     Dosage: UNK
     Route: 065
     Dates: start: 20050126
  53. FERRLECIT [Concomitant]
     Active Substance: SODIUM FERRIC GLUCONATE COMPLEX
     Indication: Product used for unknown indication
     Dosage: UNK
     Route: 042
     Dates: start: 20050225, end: 20050303
  54. CYTOBION [Concomitant]
     Indication: Product used for unknown indication
     Dosage: 1000 UG
     Route: 042
     Dates: start: 20050225, end: 20050227
  55. POTASSIUM CHLORIDE [Concomitant]
     Active Substance: POTASSIUM CHLORIDE
     Indication: Hypokalaemia
     Dosage: FORM: INFUSION, DOSE: 50MVAL
     Route: 042
     Dates: start: 20050301, end: 20050303
  56. CLINOMEL [Concomitant]
     Active Substance: AMINO ACIDS\DEXTROSE\ELECTROLYTES NOS\SOYBEAN OIL
     Indication: Product used for unknown indication
     Dosage: 1000 ML (FORM: INFUSION)
     Route: 042
     Dates: start: 20050129, end: 20050206
  57. DIGITOXIN [Concomitant]
     Active Substance: DIGITOXIN
     Indication: Product used for unknown indication
     Dosage: UNK
     Route: 065
     Dates: start: 20050202
  58. LEVOFLOXACIN [Concomitant]
     Active Substance: LEVOFLOXACIN
     Indication: Small intestinal perforation
     Dosage: DOSE: 2X500MG
     Route: 042
     Dates: start: 20050224, end: 20050303
  59. CEFOTAXIME [Concomitant]
     Active Substance: CEFOTAXIME SODIUM
     Indication: Product used for unknown indication
     Dosage: UNK
     Route: 065
     Dates: start: 20050126
  60. TUTOFUSIN [Concomitant]
     Indication: Product used for unknown indication
     Dosage: UNK
     Route: 065
     Dates: start: 20050126
  61. FENOTEROL HYDROBROMIDE\IPRATROPIUM BROMIDE [Concomitant]
     Active Substance: FENOTEROL HYDROBROMIDE\IPRATROPIUM BROMIDE
     Indication: Dyspnoea
     Dosage: DOSE: 4X2ROA-RESPIRATORY(INHALATION)
     Dates: start: 20050201, end: 20050206
  62. FOLIC ACID [Concomitant]
     Active Substance: FOLIC ACID
     Indication: Product used for unknown indication
     Dosage: UNK
     Route: 042
     Dates: start: 20050226, end: 20050303
  63. LINEZOLID [Concomitant]
     Active Substance: LINEZOLID
     Indication: Product used for unknown indication
     Dosage: UNK
     Route: 065
     Dates: start: 20050304
  64. POTASSIUM CHLORIDE [Concomitant]
     Active Substance: POTASSIUM CHLORIDE
     Indication: Product used for unknown indication
     Dosage: UNK
     Route: 042
  65. BELOC [Concomitant]
     Indication: Cardiac failure
     Dosage: UNK
     Route: 042
     Dates: start: 20050127
  66. BELOC [Concomitant]
     Dosage: UNK
     Route: 042
     Dates: start: 20050228, end: 20050303
  67. PROPOFOL [Concomitant]
     Active Substance: PROPOFOL
     Indication: Product used for unknown indication
     Route: 065
     Dates: start: 20050126
  68. CLEMASTINE FUMARATE [Concomitant]
     Active Substance: CLEMASTINE FUMARATE
     Indication: Pruritus
     Dosage: UNK
     Route: 042
     Dates: start: 20050303, end: 20050303
  69. VERAPAMIL [Concomitant]
     Active Substance: VERAPAMIL HYDROCHLORIDE
     Indication: Product used for unknown indication
     Dosage: UNK
     Route: 065
     Dates: start: 20050127
  70. RANITIDINE [Concomitant]
     Active Substance: RANITIDINE
     Indication: Product used for unknown indication
     Dosage: UNK
     Route: 065
     Dates: start: 20050126
  71. KONAKION [Concomitant]
     Active Substance: PHYTONADIONE
     Indication: Product used for unknown indication
     Dosage: (DOSE: 2X10)
     Route: 042
     Dates: start: 20050207, end: 20050207
  72. DORMICUM [Concomitant]
     Indication: Product used for unknown indication
     Dosage: UNK
     Route: 065
     Dates: start: 20050128
  73. METRONIDAZOLE [Concomitant]
     Active Substance: METRONIDAZOLE
     Indication: Small intestinal perforation
     Dosage: UNK
     Route: 042
     Dates: start: 20050126
  74. METRONIDAZOLE [Concomitant]
     Active Substance: METRONIDAZOLE
     Dosage: 1 G, QD
     Route: 042
     Dates: start: 20050224, end: 20050303

REACTIONS (6)
  - Epidermolysis [Fatal]
  - Dermatitis bullous [Fatal]
  - Rash [Fatal]
  - Toxic epidermal necrolysis [Fatal]
  - Urticaria [Fatal]
  - Stevens-Johnson syndrome [Fatal]

NARRATIVE: CASE EVENT DATE: 20050223
